FAERS Safety Report 24171622 (Version 1)
Quarter: 2024Q3

REPORT INFORMATION
  Report Type: Report from Study
  Country: US (occurrence: US)
  Receive Date: 20240805
  Receipt Date: 20240805
  Transmission Date: 20241016
  Serious: Yes (Other)
  Sender: ABBVIE
  Company Number: US-ABBVIE-5723841

PATIENT
  Sex: Female

DRUGS (2)
  1. RINVOQ [Suspect]
     Active Substance: UPADACITINIB
     Indication: Psoriatic arthropathy
     Dosage: FORM STRENGTH:15 MG
     Route: 048
     Dates: start: 20240324, end: 20240430
  2. RINVOQ [Suspect]
     Active Substance: UPADACITINIB
     Indication: Psoriatic arthropathy
     Dosage: FORM STRENGTH:15 MG
     Route: 048
     Dates: start: 20240413, end: 20240618

REACTIONS (10)
  - Hypertrophic cardiomyopathy [Not Recovered/Not Resolved]
  - Pharyngitis streptococcal [Recovering/Resolving]
  - Angina pectoris [Recovering/Resolving]
  - Hand-foot-and-mouth disease [Recovering/Resolving]
  - Ear infection [Recovering/Resolving]
  - Viral infection [Recovering/Resolving]
  - Hypertension [Recovering/Resolving]
  - Supraventricular tachycardia [Recovering/Resolving]
  - Hysterectomy [Unknown]
  - Nasopharyngitis [Unknown]

NARRATIVE: CASE EVENT DATE: 20240101
